FAERS Safety Report 7726136-5 (Version None)
Quarter: 2011Q3

REPORT INFORMATION
  Report Type: 
  Country: None (occurrence: None)
  Receive Date: 20110902
  Receipt Date: 20110824
  Transmission Date: 20111222
  Serious: Yes (Hospitalization)
  Sender: FDA-Public Use
  Company Number: PHHY2011CH76019

PATIENT
  Age: 5 Year
  Sex: Female

DRUGS (18)
  1. CLEMASTINE FUMARATE [Concomitant]
     Indication: PROPHYLACTIC CHEMOTHERAPY
     Dosage: 0.5 MG, PRN
     Route: 040
     Dates: start: 20110706, end: 20110712
  2. TARGOCID [Concomitant]
     Dosage: 150 MG, QD
     Route: 041
     Dates: start: 20110707, end: 20110711
  3. DOXORUBICIN HYDROCHLORIDE [Suspect]
     Indication: ACUTE LYMPHOCYTIC LEUKAEMIA
     Dosage: 15 MG, (CYCLIC)
     Route: 041
     Dates: start: 20110103, end: 20110603
  4. METHOTREXATE [Suspect]
     Indication: ACUTE LYMPHOCYTIC LEUKAEMIA
     Dosage: 12 MG, UNK
     Route: 029
     Dates: start: 20100101, end: 20110629
  5. BACTRIM [Concomitant]
     Indication: PROPHYLACTIC CHEMOTHERAPY
     Dosage: 40 MG, BID
     Route: 048
  6. MEROPENEM [Concomitant]
     Indication: PYREXIA
     Dosage: 500 MG, TID
     Route: 041
     Dates: start: 20110707, end: 20110714
  7. CYCLOKAPRON [Concomitant]
     Indication: HERPES VIRUS INFECTION
     Dosage: 250 MG, TID
     Route: 048
     Dates: start: 20110708, end: 20110709
  8. ALDACTONE [Concomitant]
     Indication: VENOOCCLUSIVE DISEASE
     Dosage: 7.5 MG, BID
     Dates: start: 20110709
  9. THIOGUANINE [Suspect]
     Indication: ACUTE LYMPHOCYTIC LEUKAEMIA
     Dosage: 40 MG, (CYCLIC)
     Route: 041
     Dates: start: 20110131, end: 20110705
  10. ERWINASE [Suspect]
     Indication: ACUTE LYMPHOCYTIC LEUKAEMIA
     Dosage: 15750 OT, (LU) CYCLIC
     Route: 041
     Dates: start: 20101109, end: 20110603
  11. DEXAMETHASONE [Concomitant]
     Indication: ACUTE LYMPHOCYTIC LEUKAEMIA
     Dosage: 6.5 MG, QD
     Route: 041
  12. ROCEPHIN [Concomitant]
     Indication: PYREXIA
     Dosage: 1500 MG, QD
     Route: 041
     Dates: start: 20110702, end: 20110705
  13. DEFIBROTIDE [Concomitant]
     Indication: VENOOCCLUSIVE DISEASE
     Dosage: 100 MG, QID
     Route: 041
     Dates: start: 20110709
  14. CYTARABINE [Suspect]
     Indication: ACUTE LYMPHOCYTIC LEUKAEMIA
     Dosage: 47 MG, (CYCLIC)
     Route: 041
     Dates: start: 20100827, end: 20110703
  15. VINCRISTINE [Suspect]
     Dosage: 0.95 MG (CYCLIC)
     Route: 040
     Dates: start: 20100629, end: 20110706
  16. CYCLOPHOSPHAMIDE [Suspect]
     Indication: ACUTE LYMPHOCYTIC LEUKAEMIA
     Dosage: 630 MG, (CYCLIC)
     Route: 041
     Dates: start: 20100827, end: 20110622
  17. ACETAMINOPHEN [Concomitant]
     Indication: PYREXIA
     Dosage: 250 MG, QID
     Route: 048
  18. AMIKIN [Concomitant]
     Indication: PYREXIA
     Dosage: 300 MG, QD
     Route: 041
     Dates: start: 20110702, end: 20110705

REACTIONS (8)
  - ASCITES [None]
  - THROMBOCYTOPENIA [None]
  - PYREXIA [None]
  - VENOOCCLUSIVE LIVER DISEASE [None]
  - LIVER INJURY [None]
  - ANAEMIA [None]
  - PERIPORTAL OEDEMA [None]
  - AGRANULOCYTOSIS [None]
